FAERS Safety Report 20514592 (Version 1)
Quarter: 2022Q1

REPORT INFORMATION
  Report Type: Spontaneous
  Country: BR (occurrence: BR)
  Receive Date: 20220224
  Receipt Date: 20220224
  Transmission Date: 20220423
  Serious: Yes (Other)
  Sender: FDA-Public Use
  Company Number: BR-TAKEDA-2022TUS011860

PATIENT
  Age: 28 Year
  Sex: Male

DRUGS (2)
  1. ENTYVIO [Suspect]
     Active Substance: VEDOLIZUMAB
     Indication: Crohn^s disease
     Dosage: UNK
     Route: 042
  2. PREDNISOLONE [Concomitant]
     Active Substance: PREDNISOLONE
     Dosage: UNK

REACTIONS (7)
  - Cholangitis sclerosing [Unknown]
  - Hepatic cirrhosis [Recovering/Resolving]
  - Ileal ulcer [Unknown]
  - Carcinoembryonic antigen increased [Unknown]
  - Hepatitis [Unknown]
  - Intestinal stenosis [Unknown]
  - Large intestinal ulcer [Unknown]
